FAERS Safety Report 13031981 (Version 1)
Quarter: 2016Q4

REPORT INFORMATION
  Report Type: Spontaneous
  Country: US (occurrence: US)
  Receive Date: 20161215
  Receipt Date: 20161215
  Transmission Date: 20170207
  Serious: Yes (Other)
  Sender: FDA-Public Use
  Company Number: US-BAYER-2016-232676

PATIENT
  Sex: Female

DRUGS (2)
  1. MIRENA [Suspect]
     Active Substance: LEVONORGESTREL
     Dosage: 20 MCG/24HR, CONT
     Route: 015
     Dates: start: 20161115
  2. MIRENA [Suspect]
     Active Substance: LEVONORGESTREL
     Dosage: UNK
     Dates: start: 20161115

REACTIONS (3)
  - Post procedural haemorrhage [None]
  - Vaginal haemorrhage [None]
  - Device issue [None]

NARRATIVE: CASE EVENT DATE: 2016
